FAERS Safety Report 6920243-2 (Version None)
Quarter: 2010Q3

REPORT INFORMATION
  Report Type: 
  Country: None (occurrence: None)
  Receive Date: 20100811
  Receipt Date: 20100803
  Transmission Date: 20110219
  Serious: Yes (Other)
  Sender: FDA-Public Use
  Company Number: US-AMGEN-QUU409138

PATIENT
  Sex: Female

DRUGS (3)
  1. ENBREL [Suspect]
     Indication: RHEUMATOID ARTHRITIS
     Route: 058
     Dates: start: 20080501
  2. NORVASC [Concomitant]
     Route: 048
  3. SYNTHROID [Concomitant]
     Route: 048

REACTIONS (8)
  - BLOOD PRESSURE INCREASED [None]
  - CAESAREAN SECTION [None]
  - HYPOTENSION [None]
  - INJECTION SITE HAEMORRHAGE [None]
  - JOINT STIFFNESS [None]
  - PRE-ECLAMPSIA [None]
  - RHEUMATOID ARTHRITIS [None]
  - UNDERDOSE [None]
